FAERS Safety Report 6757643-X (Version None)
Quarter: 2010Q2

REPORT INFORMATION
  Report Type: 
  Country: None (occurrence: None)
  Receive Date: 20100607
  Receipt Date: 20100601
  Transmission Date: 20101027
  Serious: No
  Sender: FDA-Public Use
  Company Number: US-JNJFOC-20100600800

PATIENT
  Sex: Female
  Weight: 63.5 kg

DRUGS (10)
  1. SANDOZ FENTANYL TRANSDERMAL SYSTEM [Suspect]
     Indication: BACK DISORDER
     Route: 062
  2. POTASSIUM [Concomitant]
     Indication: BLOOD POTASSIUM DECREASED
     Dosage: 20 MEQ/3/2 TIMES PER DAY
     Route: 048
  3. LISINOPRIL [Concomitant]
     Indication: HYPERTENSION
     Dosage: 20/25 MG/TABLET/DAILY
     Route: 048
  4. FOLIC ACID [Concomitant]
     Indication: HYPOVITAMINOSIS
     Route: 048
  5. PRAVASTATIN [Concomitant]
     Indication: BLOOD CHOLESTEROL INCREASED
     Route: 048
  6. ZETIA [Concomitant]
     Indication: BLOOD CHOLESTEROL INCREASED
     Route: 048
  7. CELEXA [Concomitant]
     Indication: DEPRESSION
     Route: 048
  8. PERCOCET [Concomitant]
     Indication: BREAKTHROUGH PAIN
     Dosage: 5-325 MG/TABLET/1 EVERY 8 HOURS
     Route: 048
  9. XANAX [Concomitant]
     Indication: NEUROPATHY PERIPHERAL
     Route: 048
  10. OMEPRAZOLE [Concomitant]
     Indication: ANTACID THERAPY
     Dosage: 1/2 BEFORE EATING
     Route: 048

REACTIONS (3)
  - ABDOMINAL PAIN [None]
  - PRODUCT QUALITY ISSUE [None]
  - WRONG TECHNIQUE IN DRUG USAGE PROCESS [None]
